FAERS Safety Report 10922054 (Version 2)
Quarter: 2015Q2

REPORT INFORMATION
  Report Type: Spontaneous
  Country: US (occurrence: US)
  Receive Date: 20150317
  Receipt Date: 20150410
  Transmission Date: 20150821
  Serious: No
  Sender: FDA-Public Use
  Company Number: US-SHIRE-US201502280

PATIENT
  Sex: Female

DRUGS (10)
  1. WHEY PROTEIN [Concomitant]
     Indication: SUPPLEMENTATION THERAPY
     Dosage: 18 G, 1X/DAY:QD
     Route: 048
     Dates: start: 2015
  2. VYVANSE [Suspect]
     Active Substance: LISDEXAMFETAMINE DIMESYLATE
     Dosage: 70 MG, 1X/DAY:QD
     Route: 048
     Dates: start: 201401, end: 201406
  3. 5 HTP                              /00439301/ [Suspect]
     Active Substance: OXITRIPTAN
     Indication: PHYTOTHERAPY
     Dosage: 50 MG, 1X/DAY:QD
     Route: 048
     Dates: start: 201503
  4. L-GLUTAMINE                        /00503401/ [Suspect]
     Active Substance: GLUTAMINE
     Dosage: 3 G, 1X/DAY:QD
     Route: 048
     Dates: start: 201503
  5. B6 [Suspect]
     Active Substance: PYRIDOXINE HYDROCHLORIDE
     Indication: PHYTOTHERAPY
     Dosage: 100 MG, 1X/DAY:QD
     Route: 048
     Dates: start: 2014
  6. B COMPLEX B12 [Concomitant]
     Indication: SUPPLEMENTATION THERAPY
     Dosage: 1.0 ML, 1X/DAY:QD
     Route: 048
     Dates: start: 201502
  7. VYVANSE [Suspect]
     Active Substance: LISDEXAMFETAMINE DIMESYLATE
     Indication: ATTENTION DEFICIT/HYPERACTIVITY DISORDER
     Dosage: 60 MG, 1X/DAY:QD
     Route: 048
     Dates: start: 201406
  8. MULTIVITAMIN                       /07504101/ [Concomitant]
     Active Substance: VITAMINS
     Indication: SUPPLEMENTATION THERAPY
     Dosage: UNK, 1X/DAY:QD
     Route: 048
     Dates: start: 2014
  9. TAURINE [Suspect]
     Active Substance: TAURINE
     Indication: PHYTOTHERAPY
     Dosage: 500 MG, 1X/DAY:QD
     Route: 048
     Dates: start: 20150310
  10. L-GLUTAMINE                        /00503401/ [Suspect]
     Active Substance: GLUTAMINE
     Indication: PHYTOTHERAPY
     Dosage: 5 G, 1X/DAY:QD
     Route: 048
     Dates: start: 201503

REACTIONS (3)
  - Product quality issue [Not Recovered/Not Resolved]
  - Palpitations [Recovered/Resolved]
  - Drug effect decreased [Not Recovered/Not Resolved]

NARRATIVE: CASE EVENT DATE: 201412
